FAERS Safety Report 23220202 (Version 2)
Quarter: 2024Q1

REPORT INFORMATION
  Report Type: Spontaneous
  Country: PL (occurrence: PL)
  Receive Date: 20231123
  Receipt Date: 20240103
  Transmission Date: 20240410
  Serious: Yes (Death, Life-Threatening, Hospitalization, Other)
  Sender: FDA-Public Use
  Company Number: PL-MLMSERVICE-20231108-4647069-1

PATIENT
  Age: 62 Year
  Sex: Male

DRUGS (22)
  1. BENDAMUSTINE [Suspect]
     Active Substance: BENDAMUSTINE
     Indication: Chronic lymphocytic leukaemia
     Dosage: UNK
     Route: 065
  2. BENDAMUSTINE [Suspect]
     Active Substance: BENDAMUSTINE
     Indication: Disease progression
  3. CHLORAMBUCIL [Suspect]
     Active Substance: CHLORAMBUCIL
     Indication: Disease progression
     Dosage: UNK
     Route: 065
     Dates: end: 2010
  4. CHLORAMBUCIL [Suspect]
     Active Substance: CHLORAMBUCIL
     Indication: Chronic lymphocytic leukaemia
  5. CYCLOPHOSPHAMIDE [Suspect]
     Active Substance: CYCLOPHOSPHAMIDE
     Indication: Disease progression
     Dosage: UNK
     Route: 065
     Dates: start: 2010
  6. CYCLOPHOSPHAMIDE [Suspect]
     Active Substance: CYCLOPHOSPHAMIDE
     Indication: Chronic lymphocytic leukaemia
     Dosage: UNK
     Route: 065
     Dates: start: 2016
  7. DEXAMETHASONE [Suspect]
     Active Substance: DEXAMETHASONE
     Indication: Disease progression
     Dosage: UNK
     Route: 065
  8. DEXAMETHASONE [Suspect]
     Active Substance: DEXAMETHASONE
     Indication: Chronic lymphocytic leukaemia
  9. DOXORUBICIN [Suspect]
     Active Substance: DOXORUBICIN
     Indication: Disease progression
     Dosage: UNK
     Route: 065
     Dates: start: 2016
  10. DOXORUBICIN [Suspect]
     Active Substance: DOXORUBICIN
     Indication: Chronic lymphocytic leukaemia
  11. FLUDARABINE [Suspect]
     Active Substance: FLUDARABINE PHOSPHATE
     Indication: Chronic lymphocytic leukaemia
     Dosage: UNK
     Route: 065
     Dates: start: 2010
  12. FLUDARABINE [Suspect]
     Active Substance: FLUDARABINE PHOSPHATE
     Indication: Disease progression
  13. IBRUTINIB [Suspect]
     Active Substance: IBRUTINIB
     Indication: Disease progression
     Dosage: UNK
     Route: 065
     Dates: start: 2017
  14. IBRUTINIB [Suspect]
     Active Substance: IBRUTINIB
     Indication: Chronic lymphocytic leukaemia
  15. PREDNISONE [Suspect]
     Active Substance: PREDNISONE
     Indication: Chronic lymphocytic leukaemia
     Dosage: UNK
     Route: 065
     Dates: start: 2016
  16. PREDNISONE [Suspect]
     Active Substance: PREDNISONE
     Indication: Disease progression
  17. RITUXIMAB [Suspect]
     Active Substance: RITUXIMAB
     Indication: Disease progression
     Dosage: 2 DOSAGE FORM
     Route: 065
  18. RITUXIMAB [Suspect]
     Active Substance: RITUXIMAB
     Indication: Chronic lymphocytic leukaemia
     Dosage: UNK
     Route: 065
     Dates: start: 2017
  19. RITUXIMAB [Suspect]
     Active Substance: RITUXIMAB
     Indication: Viraemia
  20. VINCRISTINE [Suspect]
     Active Substance: VINCRISTINE
     Indication: Disease progression
     Dosage: UNK
     Route: 065
     Dates: start: 2016
  21. VINCRISTINE [Suspect]
     Active Substance: VINCRISTINE
     Indication: Chronic lymphocytic leukaemia
  22. LAMIVUDINE [Concomitant]
     Active Substance: LAMIVUDINE
     Indication: Product used for unknown indication
     Dosage: UNK
     Route: 065

REACTIONS (5)
  - Natural killer-cell lymphoblastic lymphoma [Fatal]
  - Bone marrow disorder [Fatal]
  - Cytomegalovirus infection [Fatal]
  - Epstein-Barr virus infection [Unknown]
  - Candida infection [Unknown]
